FAERS Safety Report 17294409 (Version 5)
Quarter: 2022Q4

REPORT INFORMATION
  Report Type: Spontaneous
  Country: US (occurrence: US)
  Receive Date: 20200121
  Receipt Date: 20221011
  Transmission Date: 20230113
  Serious: Yes (Other)
  Sender: FDA-Public Use
  Company Number: US-GILEAD-2020-0447109

PATIENT
  Age: 53 Year
  Sex: Male
  Weight: 80.726 kg

DRUGS (45)
  1. VIREAD [Suspect]
     Active Substance: TENOFOVIR DISOPROXIL FUMARATE
     Indication: HIV infection
     Dosage: UNK
     Route: 048
     Dates: start: 20020618, end: 200710
  2. VIREAD [Suspect]
     Active Substance: TENOFOVIR DISOPROXIL FUMARATE
     Dosage: UNK
     Route: 048
     Dates: start: 200806, end: 200808
  3. STRIBILD [Suspect]
     Active Substance: COBICISTAT\ELVITEGRAVIR\EMTRICITABINE\TENOFOVIR DISOPROXIL FUMARATE
     Indication: HIV infection
     Dosage: UNK
     Route: 048
     Dates: start: 20150909, end: 201705
  4. STRIBILD [Suspect]
     Active Substance: COBICISTAT\ELVITEGRAVIR\EMTRICITABINE\TENOFOVIR DISOPROXIL FUMARATE
     Dosage: UNK
     Route: 065
     Dates: start: 20150909, end: 201607
  5. STRIBILD [Suspect]
     Active Substance: COBICISTAT\ELVITEGRAVIR\EMTRICITABINE\TENOFOVIR DISOPROXIL FUMARATE
     Dosage: UNK
     Route: 048
     Dates: start: 20150915, end: 201702
  6. STRIBILD [Suspect]
     Active Substance: COBICISTAT\ELVITEGRAVIR\EMTRICITABINE\TENOFOVIR DISOPROXIL FUMARATE
     Dosage: UNK
     Route: 048
     Dates: start: 20150915, end: 20170327
  7. TRUVADA [Suspect]
     Active Substance: EMTRICITABINE\TENOFOVIR DISOPROXIL FUMARATE
     Indication: HIV infection
     Dosage: UNK
     Route: 048
     Dates: start: 20080812, end: 201304
  8. TRUVADA [Suspect]
     Active Substance: EMTRICITABINE\TENOFOVIR DISOPROXIL FUMARATE
     Dosage: UNK
     Route: 048
     Dates: start: 200808, end: 201509
  9. ZERIT [Concomitant]
     Active Substance: STAVUDINE
  10. VITAMINS [Concomitant]
     Active Substance: VITAMINS
  11. ZITHROMAX [Concomitant]
     Active Substance: AZITHROMYCIN DIHYDRATE
  12. SULFADIAZINE\TRIMETHOPRIM [Concomitant]
     Active Substance: SULFADIAZINE\TRIMETHOPRIM
  13. VIDEX EC [Concomitant]
     Active Substance: DIDANOSINE
  14. HAVRIX [Concomitant]
     Active Substance: HEPATITIS A VIRUS STRAIN HM175 ANTIGEN (FORMALDEHYDE INACTIVATED)
  15. IBUPROFEN [Concomitant]
     Active Substance: IBUPROFEN
  16. DIDANOSINE [Concomitant]
     Active Substance: DIDANOSINE
  17. AMOXICILLIN\CLAVULANIC ACID [Concomitant]
     Active Substance: AMOXICILLIN\CLAVULANIC ACID
  18. KALETRA [Concomitant]
     Active Substance: LOPINAVIR\RITONAVIR
  19. DIPHENHYDRAMINE [Concomitant]
     Active Substance: DIPHENHYDRAMINE
  20. ACETAMINOPHEN [Concomitant]
     Active Substance: ACETAMINOPHEN
  21. FAMOTIDINE [Concomitant]
     Active Substance: FAMOTIDINE
  22. PREDNISONE [Concomitant]
     Active Substance: PREDNISONE
  23. EPIPEN [Concomitant]
     Active Substance: EPINEPHRINE
  24. LEVOFLOXACIN [Concomitant]
     Active Substance: LEVOFLOXACIN
  25. OXYCODONE [Concomitant]
     Active Substance: OXYCODONE
  26. GEMFIBROZIL [Concomitant]
     Active Substance: GEMFIBROZIL
  27. ADENOSINE [Concomitant]
     Active Substance: ADENOSINE
  28. AZITHROMYCIN [Concomitant]
     Active Substance: AZITHROMYCIN
  29. LOVAZA [Concomitant]
     Active Substance: OMEGA-3-ACID ETHYL ESTERS
  30. FENOFIBRATE [Concomitant]
     Active Substance: FENOFIBRATE
  31. ACYCLOVIR [Concomitant]
     Active Substance: ACYCLOVIR
  32. PANTOPRAZOLE [Concomitant]
     Active Substance: PANTOPRAZOLE
  33. PREDNISOLONE [Concomitant]
     Active Substance: PREDNISOLONE
  34. INTELENCE [Concomitant]
     Active Substance: ETRAVIRINE
  35. EPIVIR [Concomitant]
     Active Substance: LAMIVUDINE
  36. NORVIR [Concomitant]
     Active Substance: RITONAVIR
  37. PREZISTA [Concomitant]
     Active Substance: DARUNAVIR ETHANOLATE
  38. VIDEX [Concomitant]
     Active Substance: DIDANOSINE
  39. TIVICAY [Concomitant]
     Active Substance: DOLUTEGRAVIR SODIUM
  40. FLUCONAZOLE [Concomitant]
     Active Substance: FLUCONAZOLE
  41. SULFAMETHOXAZOLE\TRIMETHOPRIM [Concomitant]
     Active Substance: SULFAMETHOXAZOLE\TRIMETHOPRIM
  42. NEURONTIN [Concomitant]
     Active Substance: GABAPENTIN
  43. APAP [Concomitant]
     Active Substance: ACETAMINOPHEN
  44. LOPERAMIDE [Concomitant]
     Active Substance: LOPERAMIDE
  45. TRAMADOL [Concomitant]
     Active Substance: TRAMADOL

REACTIONS (13)
  - Osteoporosis [Not Recovered/Not Resolved]
  - Chronic kidney disease [Not Recovered/Not Resolved]
  - Chronic kidney disease [Unknown]
  - Osteonecrosis [Not Recovered/Not Resolved]
  - Osteopenia [Not Recovered/Not Resolved]
  - Emotional distress [Unknown]
  - Anhedonia [Unknown]
  - Economic problem [Unknown]
  - Bone density decreased [Not Recovered/Not Resolved]
  - Tooth loss [Not Recovered/Not Resolved]
  - Bone loss [Unknown]
  - Anxiety [Unknown]
  - Pain [Unknown]

NARRATIVE: CASE EVENT DATE: 20160901
